FAERS Safety Report 6492131-X (Version None)
Quarter: 2009Q4

REPORT INFORMATION
  Report Type: 
  Country: None (occurrence: None)
  Receive Date: 20091214
  Receipt Date: 20091202
  Transmission Date: 20100525
  Serious: Yes (Other)
  Sender: FDA-Public Use
  Company Number: GB-RANBAXY-2009US-29554

PATIENT

DRUGS (3)
  1. NEFAZODONE HYDROCHLORIDE [Suspect]
     Indication: ANXIETY
     Dosage: 400 MG, QD
     Route: 065
     Dates: start: 19990401
  2. NEFAZODONE HYDROCHLORIDE [Suspect]
     Indication: DEPRESSION
     Dosage: 600 MG, QD
     Route: 065
  3. CIMETIDINE 400MG TABLETS BP [Suspect]
     Indication: GASTRITIS
     Dosage: 400 MG, BID
     Route: 048

REACTIONS (3)
  - DRUG INTERACTION [None]
  - DRUG TOXICITY [None]
  - VISUAL IMPAIRMENT [None]
